FAERS Safety Report 22062490 (Version 1)
Quarter: 2023Q1

REPORT INFORMATION
  Report Type: Spontaneous
  Country: CN (occurrence: CN)
  Receive Date: 20230305
  Receipt Date: 20230305
  Transmission Date: 20230417
  Serious: Yes (Hospitalization)
  Sender: FDA-Public Use
  Company Number: CN-BEH-2023155837

PATIENT
  Age: 83 Year
  Sex: Male
  Weight: 70 kg

DRUGS (1)
  1. ALBURX [Suspect]
     Active Substance: ALBUMIN HUMAN
     Indication: Hypoproteinaemia
     Dosage: 50 MILLILITER, OD
     Route: 041
     Dates: start: 20230207, end: 20230207

REACTIONS (12)
  - Tremor [Recovering/Resolving]
  - Cyanosis [Recovered/Resolved]
  - Rash [Recovered/Resolved]
  - Petechiae [Recovering/Resolving]
  - Hyperpyrexia [Recovered/Resolved]
  - Blood pressure increased [Recovering/Resolving]
  - Chills [Recovered/Resolved]
  - Feeling cold [Recovered/Resolved]
  - Cyanosis [Recovered/Resolved]
  - Cyanosis [Recovered/Resolved]
  - Heart rate increased [Unknown]
  - Respiratory rate increased [Unknown]

NARRATIVE: CASE EVENT DATE: 20230207
